FAERS Safety Report 10051027 (Version 1)
Quarter: 2014Q2

REPORT INFORMATION
  Report Type: Spontaneous
  Country: BR (occurrence: BR)
  Receive Date: 20140401
  Receipt Date: 20140401
  Transmission Date: 20141212
  Serious: Yes (Other)
  Sender: FDA-Public Use
  Company Number: BR-DSJP-DSU-2014-102820

PATIENT
  Sex: 0

DRUGS (3)
  1. OLMETEC HCT [Suspect]
     Indication: HYPERTENSION
     Dosage: 40/25 MG, QD
     Route: 048
     Dates: start: 201401
  2. ALDACTONE                          /00006201/ [Concomitant]
     Indication: HYPERTENSION
     Dosage: UNK
     Dates: start: 20140124
  3. CENTRUM                            /00554501/ [Concomitant]
     Indication: VITAMIN SUPPLEMENTATION
     Dosage: 1 DF, QD

REACTIONS (1)
  - Umbilical hernia repair [Unknown]
